FAERS Safety Report 5032563-X (Version None)
Quarter: 2006Q2

REPORT INFORMATION
  Report Type: 
  Country: None (occurrence: None)
  Receive Date: 20060622
  Receipt Date: 20060413
  Transmission Date: 20061013
  Serious: Yes (Death)
  Sender: FDA-Public Use
  Company Number: IT-AVENTIS-200612222EU

PATIENT
  Sex: Male

DRUGS (2)
  1. CLEXANE [Suspect]
     Indication: PROPHYLAXIS
     Route: 058
  2. CLEXANE [Suspect]
     Route: 058

REACTIONS (1)
  - PULMONARY EMBOLISM [None]
